FAERS Safety Report 9892411 (Version 1)
Quarter: 2014Q1

REPORT INFORMATION
  Report Type: Report from Study
  Country: US (occurrence: US)
  Receive Date: 20140212
  Receipt Date: 20140212
  Transmission Date: 20141002
  Serious: Yes (Hospitalization)
  Sender: FDA-Public Use
  Company Number: US-US-EMD SERONO, INC.-7268016

PATIENT
  Age: 58 Year
  Sex: Female
  Weight: 84 kg

DRUGS (1)
  1. REBIF [Suspect]
     Indication: MULTIPLE SCLEROSIS
     Route: 058
     Dates: start: 20041022, end: 20130607

REACTIONS (4)
  - Basedow^s disease [Recovered/Resolved]
  - Thyrotoxic crisis [Recovered/Resolved]
  - Autoimmune disorder [Recovered/Resolved]
  - Arthritis reactive [Recovered/Resolved]
